FAERS Safety Report 4319661-0 (Version None)
Quarter: 2004Q1

REPORT INFORMATION
  Report Type: 
  Country: None (occurrence: None)
  Receive Date: 20040319
  Receipt Date: 20020516
  Transmission Date: 20041129
  Serious: Yes (Other)
  Sender: FDA-Public Use
  Company Number: WAES 0205USA02146

PATIENT
  Age: 78 Year
  Sex: Male
  Weight: 78 kg

DRUGS (1)
  1. VIOXX [Suspect]
     Indication: BLOOD CHOLESTEROL INCREASED
     Route: 048
     Dates: start: 19990101, end: 19990101

REACTIONS (12)
  - ABDOMINAL PAIN UPPER [None]
  - ADVERSE EVENT [None]
  - ARRHYTHMIA [None]
  - ARTHROPATHY [None]
  - ATRIAL FIBRILLATION [None]
  - DIVERTICULITIS [None]
  - GASTROINTESTINAL DISORDER [None]
  - HEART RATE IRREGULAR [None]
  - INJURY [None]
  - KNEE ARTHROPLASTY [None]
  - MUSCLE CRAMP [None]
  - PROSTATE CANCER [None]
